FAERS Safety Report 10110950 (Version 1)
Quarter: 2014Q2

REPORT INFORMATION
  Report Type: Spontaneous
  Country: US (occurrence: None)
  Receive Date: 20140424
  Receipt Date: 20140424
  Transmission Date: 20141212
  Serious: Yes (Disabling)
  Sender: FDA-Public Use
  Company Number: None

PATIENT
  Age: 59 Year
  Sex: Female
  Weight: 73.94 kg

DRUGS (2)
  1. VITAMIN C [Suspect]
     Indication: NUTRITIONAL SUPPLEMENTATION
     Dosage: YEARS
  2. MULTI MINERALS [Suspect]
     Indication: NUTRITIONAL SUPPLEMENTATION
     Dosage: YEARS

REACTIONS (7)
  - Fatigue [None]
  - Muscular weakness [None]
  - Muscle spasms [None]
  - Pyrexia [None]
  - Swelling [None]
  - Lupus-like syndrome [None]
  - Connective tissue disorder [None]
